FAERS Safety Report 12072849 (Version 4)
Quarter: 2016Q2

REPORT INFORMATION
  Report Type: Spontaneous
  Country: US (occurrence: US)
  Receive Date: 20160212
  Receipt Date: 20160418
  Transmission Date: 20160815
  Serious: Yes (Other)
  Sender: FDA-Public Use
  Company Number: US-PFIZER INC-2016071666

PATIENT
  Age: 67 Year
  Sex: Female
  Weight: 89.34 kg

DRUGS (4)
  1. LETROZOLE. [Suspect]
     Active Substance: LETROZOLE
     Dosage: UNK
  2. IBRANCE [Suspect]
     Active Substance: PALBOCICLIB
     Dosage: 75 MG, CYCLIC (1-21 Q 28 DAYS)
     Route: 048
     Dates: start: 20160120
  3. IBRANCE [Suspect]
     Active Substance: PALBOCICLIB
     Indication: BREAST CANCER METASTATIC
     Dosage: 125 MG, CYCLIC (D1-D21 Q28D)
     Route: 048
     Dates: start: 20160120
  4. IBRANCE [Suspect]
     Active Substance: PALBOCICLIB
     Dosage: 125 MG, CYCLIC (D1-D21 Q28D)
     Route: 048
     Dates: end: 20160406

REACTIONS (8)
  - White blood cell count decreased [Unknown]
  - Therapeutic response unexpected [Unknown]
  - Breast cancer metastatic [Unknown]
  - Fatigue [Unknown]
  - Nausea [Unknown]
  - Pre-existing condition improved [Unknown]
  - Disease progression [Unknown]
  - Vomiting [Unknown]

NARRATIVE: CASE EVENT DATE: 2016
